FAERS Safety Report 24326575 (Version 2)
Quarter: 2024Q3

REPORT INFORMATION
  Report Type: Spontaneous
  Country: FR (occurrence: FR)
  Receive Date: 20240917
  Receipt Date: 20240924
  Transmission Date: 20241017
  Serious: Yes (Hospitalization, Other)
  Sender: AMGEN
  Company Number: FR-ABBVIE-5905500

PATIENT
  Age: 22 Year
  Sex: Female
  Weight: 54 kg

DRUGS (2)
  1. ADALIMUMAB [Suspect]
     Active Substance: ADALIMUMAB
     Indication: Crohn^s disease
     Dosage: UNK
     Route: 058
     Dates: start: 2015
  2. VEDOLIZUMAB [Concomitant]
     Active Substance: VEDOLIZUMAB
     Indication: Product used for unknown indication
     Dosage: UNK
     Dates: start: 202102

REACTIONS (20)
  - Ileocaecal resection [Unknown]
  - Enterocolitis [Unknown]
  - Ileal ulcer [Unknown]
  - Intestinal obstruction [Unknown]
  - Crohn^s disease [Unknown]
  - Large intestinal stenosis [Unknown]
  - Ileal ulcer [Unknown]
  - Colitis microscopic [Unknown]
  - Large intestinal ulcer [Unknown]
  - Abdominal pain [Unknown]
  - Vomiting [Unknown]
  - Drug intolerance [Unknown]
  - Treatment failure [Unknown]
  - Symptom recurrence [Unknown]
  - Maternal exposure during pregnancy [Unknown]
  - C-reactive protein increased [Unknown]
  - Faecal calprotectin increased [Unknown]
  - Diarrhoea [Unknown]
  - Lymphadenopathy [Unknown]
  - Anal fistula [Recovered/Resolved]

NARRATIVE: CASE EVENT DATE: 20140101
